FAERS Safety Report 19723938 (Version 1)
Quarter: 2021Q3

REPORT INFORMATION
  Report Type: Spontaneous
  Country: FR (occurrence: FR)
  Receive Date: 20210819
  Receipt Date: 20210819
  Transmission Date: 20211014
  Serious: Yes (Other)
  Sender: FDA-Public Use
  Company Number: FR-MYLANLABS-2021M1052171

PATIENT
  Age: 75 Year
  Sex: Female
  Weight: 65 kg

DRUGS (1)
  1. GABAPENTINE MYLAN 100 MG, G?LULE [Suspect]
     Active Substance: GABAPENTIN
     Indication: BACK PAIN
     Dosage: 100 MILLIGRAM
     Route: 048
     Dates: start: 20210420, end: 20210428

REACTIONS (1)
  - Dupuytren^s contracture [Not Recovered/Not Resolved]

NARRATIVE: CASE EVENT DATE: 20210428
